FAERS Safety Report 9364219 (Version 2)
Quarter: 2013Q3

REPORT INFORMATION
  Report Type: Spontaneous
  Country: US (occurrence: US)
  Receive Date: 20130624
  Receipt Date: 20130724
  Transmission Date: 20140515
  Serious: Yes (Other)
  Sender: FDA-Public Use
  Company Number: US-PFIZER INC-2013148851

PATIENT
  Age: 72 Year
  Sex: Female
  Weight: 98 kg

DRUGS (4)
  1. GEODON [Suspect]
     Indication: SCHIZOPHRENIA
     Dosage: 40 MG, 2X/DAY
     Route: 048
  2. TRIHEXYPHENIDYL [Concomitant]
     Dosage: UNK
  3. SERTRALINE [Concomitant]
     Dosage: UNK
  4. DIAZEPAM [Concomitant]
     Dosage: UNK

REACTIONS (2)
  - Mental impairment [Unknown]
  - Stress [Unknown]
